FAERS Safety Report 9448084 (Version 1)
Quarter: 2013Q3

REPORT INFORMATION
  Report Type: Spontaneous
  Country: IT (occurrence: IT)
  Receive Date: 20130808
  Receipt Date: 20130808
  Transmission Date: 20140515
  Serious: Yes (Hospitalization)
  Sender: FDA-Public Use
  Company Number: IT-RANBAXY-2013R1-72092

PATIENT
  Age: 65 Year
  Sex: Male

DRUGS (3)
  1. NIMESULIDE [Suspect]
     Indication: CHEST PAIN
     Dosage: 1 DF, COMPLETE
     Route: 048
     Dates: start: 20130530, end: 20130530
  2. IBUPROFEN [Suspect]
     Indication: CHEST PAIN
     Dosage: 1 DF, COMPLETE
     Route: 048
     Dates: start: 20130530, end: 20130530
  3. DILTIAZEM [Concomitant]
     Indication: PRODUCT USED FOR UNKNOWN INDICATION
     Route: 065

REACTIONS (2)
  - Hypotension [Unknown]
  - Rectal haemorrhage [Unknown]
